FAERS Safety Report 4616362-6 (Version None)
Quarter: 2005Q1

REPORT INFORMATION
  Report Type: 
  Country: None (occurrence: None)
  Receive Date: 20050321
  Receipt Date: 20050316
  Transmission Date: 20050727
  Serious: No
  Sender: FDA-Public Use
  Company Number: 2005UW04153

PATIENT
  Age: 16 Year
  Sex: Male

DRUGS (1)
  1. SEROQUEL [Suspect]
     Dates: end: 20050101

REACTIONS (2)
  - JAUNDICE [None]
  - LIVER FUNCTION TEST ABNORMAL [None]
